FAERS Safety Report 10157042 (Version 2)
Quarter: 2014Q2

REPORT INFORMATION
  Report Type: Spontaneous
  Country: US (occurrence: US)
  Receive Date: 20140507
  Receipt Date: 20140526
  Transmission Date: 20141212
  Serious: No
  Sender: FDA-Public Use
  Company Number: US-PFIZER INC-2014122725

PATIENT
  Sex: Male

DRUGS (4)
  1. GLIPIZIDE [Suspect]
     Indication: BLOOD GLUCOSE ABNORMAL
     Dosage: UNK
  2. GLIPIZIDE [Suspect]
     Indication: TYPE 2 DIABETES MELLITUS
  3. METFORMIN HCL [Suspect]
     Indication: BLOOD GLUCOSE ABNORMAL
     Dosage: UNK
  4. VICTOZA [Suspect]
     Indication: BLOOD GLUCOSE ABNORMAL
     Dosage: UNK

REACTIONS (1)
  - Blood glucose increased [Unknown]
